FAERS Safety Report 5759572-7 (Version None)
Quarter: 2008Q2

REPORT INFORMATION
  Report Type: 
  Country: None (occurrence: None)
  Receive Date: 20080605
  Receipt Date: 20080529
  Transmission Date: 20081010
  Serious: Yes (Disabling, Other)
  Sender: FDA-Public Use
  Company Number: TR-ASTRAZENECA-2008SE02758

PATIENT
  Age: 44 Year
  Sex: Male
  Weight: 110 kg

DRUGS (2)
  1. NEXIUM [Suspect]
     Indication: GASTROOESOPHAGEAL REFLUX DISEASE
     Dosage: 20-40 MG
     Route: 048
     Dates: start: 20080101, end: 20080501
  2. EKLIPS [Concomitant]
     Indication: HYPERTENSION
     Dosage: 50 MG/12,5 MG
     Route: 048
     Dates: start: 20070501

REACTIONS (3)
  - ERECTILE DYSFUNCTION [None]
  - GYNAECOMASTIA [None]
  - LIBIDO DECREASED [None]
